FAERS Safety Report 5288708-X (Version None)
Quarter: 2007Q2

REPORT INFORMATION
  Report Type: 
  Country: None (occurrence: None)
  Receive Date: 20070405
  Receipt Date: 20070328
  Transmission Date: 20071010
  Serious: Yes (Hospitalization)
  Sender: FDA-Public Use
  Company Number: IT-ROCHE-490371

PATIENT
  Age: 79 Year
  Sex: Male

DRUGS (10)
  1. ROCEPHIN [Suspect]
     Indication: BRONCHITIS
     Route: 030
     Dates: start: 20070228, end: 20070303
  2. MACLADIN [Suspect]
     Indication: BRONCHITIS
     Route: 048
     Dates: start: 20070228, end: 20070303
  3. COTAREG [Concomitant]
     Route: 048
  4. SEREUPIN [Concomitant]
     Route: 048
  5. TICLOPIDINA [Concomitant]
     Dosage: DRUG: TICLOPIDINA DOROM
     Route: 048
  6. 1 CONCOMITANT DRUG [Concomitant]
     Dosage: DRUG NAME REPORTED AS OMEGA POLIENOICS/ESKIN
  7. METFORAL [Concomitant]
  8. TERAZOSINA [Concomitant]
  9. XANAX [Concomitant]
     Route: 048
  10. LORAZEPAM [Concomitant]
     Route: 048

REACTIONS (2)
  - OEDEMA [None]
  - URTICARIA [None]
